FAERS Safety Report 9228239 (Version 2)
Quarter: 2013Q2

REPORT INFORMATION
  Report Type: Report from Study
  Country: JP (occurrence: JP)
  Receive Date: 20130412
  Receipt Date: 20130621
  Transmission Date: 20140414
  Serious: Yes (Death, Other)
  Sender: FDA-Public Use
  Company Number: JP-ROCHE-1208739

PATIENT
  Age: 54 Year
  Sex: Male

DRUGS (2)
  1. ALTEPLASE [Suspect]
     Indication: ISCHAEMIC STROKE
     Dosage: 10% GIVEN AS A BOLUS, FOLLOWED BY CONTINUOUS INFUSION OF THE REMAINDER OVER 1 HOUR.
     Route: 042
  2. HEPARIN [Suspect]
     Indication: PRODUCT USED FOR UNKNOWN INDICATION
     Dosage: CONTINUOUS FLUSH
     Route: 013

REACTIONS (3)
  - Cerebral infarction [Fatal]
  - Arterial rupture [Unknown]
  - Drug ineffective [Recovered/Resolved]
